FAERS Safety Report 10218915 (Version 1)
Quarter: 2014Q2

REPORT INFORMATION
  Report Type: Spontaneous
  Country: US (occurrence: US)
  Receive Date: 20140605
  Receipt Date: 20140605
  Transmission Date: 20141212
  Serious: No
  Sender: FDA-Public Use
  Company Number: US-009507513-1405USA015511

PATIENT
  Sex: 0

DRUGS (2)
  1. PROVENTIL [Suspect]
     Indication: COUGH
     Dosage: 2 PUFFS 4 TIMES DAILY BY MOUNTH AS NEEDED
     Route: 048
     Dates: start: 201404
  2. PROVENTIL [Suspect]
     Indication: WHEEZING

REACTIONS (2)
  - Chest pain [Unknown]
  - Drug ineffective [Unknown]
